FAERS Safety Report 23202619 (Version 1)
Quarter: 2023Q4

REPORT INFORMATION
  Report Type: Spontaneous
  Country: IR (occurrence: IR)
  Receive Date: 20231120
  Receipt Date: 20231120
  Transmission Date: 20240109
  Serious: Yes (Death, Life-Threatening, Hospitalization, Other)
  Sender: FDA-Public Use
  Company Number: None

PATIENT
  Age: 50 Year
  Sex: Female

DRUGS (7)
  1. MYCOPHENOLATE MOFETIL [Suspect]
     Active Substance: MYCOPHENOLATE MOFETIL
     Indication: Immunosuppressant drug therapy
     Dosage: EVERY 12 HRS, II/BD
     Route: 065
     Dates: start: 2022, end: 2022
  2. MYCOPHENOLATE MOFETIL [Suspect]
     Active Substance: MYCOPHENOLATE MOFETIL
     Dosage: DOSES OF IMMUNOSUPPRESSIVE MEDICATIONS WERE DECREASED
     Route: 065
     Dates: start: 2022
  3. PREDNISOLONE [Suspect]
     Active Substance: PREDNISOLONE
     Indication: Immunosuppressant drug therapy
     Dosage: DOSES OF IMMUNOSUPPRESSIVE MEDICATIONS WERE DECREASED
     Route: 065
     Dates: start: 2022
  4. PREDNISOLONE [Suspect]
     Active Substance: PREDNISOLONE
     Dosage: 20 MILLIGRAM
     Route: 065
     Dates: start: 2022, end: 2022
  5. TACROLIMUS [Suspect]
     Active Substance: TACROLIMUS
     Indication: Immunosuppressant drug therapy
     Dosage: EVERY 12 HRS, II/BD
     Route: 065
     Dates: start: 2022, end: 2022
  6. TACROLIMUS [Suspect]
     Active Substance: TACROLIMUS
     Dosage: DOSES OF IMMUNOSUPPRESSIVE MEDICATIONS WERE DECREASED
     Route: 065
     Dates: start: 2022
  7. METHYLPREDNISOLONE [Suspect]
     Active Substance: METHYLPREDNISOLONE
     Indication: Immunosuppressant drug therapy
     Dosage: 1 GRAM, QD
     Route: 065
     Dates: start: 2022, end: 2022

REACTIONS (2)
  - Acute myelomonocytic leukaemia [Fatal]
  - Septic shock [Fatal]

NARRATIVE: CASE EVENT DATE: 20220101
